FAERS Safety Report 10233502 (Version 1)
Quarter: 2014Q1

REPORT INFORMATION
  Report Type: Spontaneous
  Country: US (occurrence: None)
  Receive Date: 20140306
  Receipt Date: 20140306
  Transmission Date: 20141002
  Serious: Yes (Other)
  Sender: FDA-Public Use
  Company Number: 163-21880-13052469

PATIENT
  Age: 71 Year
  Sex: Female
  Weight: 134.54 kg

DRUGS (29)
  1. REVLIMID (LENALIDOMIDE) (CAPSULES) [Suspect]
     Indication: PLASMA CELL MYELOMA
     Dosage: 25 MG, 14 IN 21 D, PO
     Route: 048
     Dates: start: 20121206
  2. HUMALOG (INSULIN LISPRO) (UNKNOWN) [Concomitant]
  3. SINGULAIR (MONTELUKAST SODIUM) (UNKNOWN) [Concomitant]
  4. LOSARTAN (LOSARTAN) (UNKNOWN) [Concomitant]
  5. DEXAMETHASONE (DEXAMETHASONE) (UNKNOWN) [Concomitant]
  6. FUROSEMIDE (FUROSEMIDE) (UNKNOWN) [Concomitant]
  7. LOVASTATIN (LOVASTATIN) (UNKNOWN) [Concomitant]
  8. ONDANSETRON HCL (ONDANSETRON HYDROCHLORIDE) (UNKNOWN) [Concomitant]
  9. PROCHLORPERAZINE (PROCHLORPERAZINE) (UNKNOWN) [Concomitant]
  10. OMEPRAZOLE (OMEPRAZOLE) (UNKNOWN) [Concomitant]
  11. ALPRAZOLAM (ALPRAZOLAM) (UNKNOWN) [Concomitant]
  12. KLOR-CON (POTASSIUM CHLORIDE) (UNKNOWN) [Concomitant]
  13. DILTIAZEM HCL (DILTIAZEM HYDROCHLORIDE) (UNKNOWN) [Concomitant]
  14. ESTRADIOL (ESTRADIOL) (UNKNOWN) [Concomitant]
  15. LEVOTHYROXINE (LEVOTHYROXINE) (UNKNOWN) [Concomitant]
  16. TRADJENTA (LINAGLIPTIN) (UNKNOWN) [Concomitant]
  17. VELCADE (BORTEZOMIB) (UNKNOWN) [Concomitant]
  18. POTASSIUM CHLORIDE (POTASSIUM CHLORIDE) (UNKNOWN) [Concomitant]
  19. CEPHALEXIN (CEFALEXIN) (UNKNOWN) [Concomitant]
  20. ASPIRIN (UNKNOWN) [Concomitant]
  21. MULTIVITAMINS IRON FA CALCIUM + MINS (UNKNOWN) [Concomitant]
  22. FISH OIL (FISH OIL) (UNKNOWN) [Concomitant]
  23. VITAMIN D (ERGOCALCIFEROL) (UNKNOWN) [Concomitant]
  24. CALCIUM (CALCIUM) (UNKNOWN) [Concomitant]
  25. IRON (IRON) (UNKNOWN) [Concomitant]
  26. BIOTIN (BIOTIN) (UNKNOWN) [Concomitant]
  27. HYDROCODONE/ACETAMINOPHEN (REMEDEINE) (UNKNOWN) [Concomitant]
  28. METAXALONE (METAXALONE) (UNKNOWN) [Concomitant]
  29. COMPAZINE (PROCHLORPERAZINE EDISYLATE) (UNKNOWN) [Concomitant]

REACTIONS (3)
  - Anaemia [None]
  - Platelet count decreased [None]
  - Neutrophil count decreased [None]
